FAERS Safety Report 16441741 (Version 1)
Quarter: 2019Q2

REPORT INFORMATION
  Report Type: Report from Study
  Country: None (occurrence: US)
  Receive Date: 20190617
  Receipt Date: 20190617
  Transmission Date: 20190711
  Serious: No
  Sender: FDA-Public Use
  Company Number: US-US WORLDMEDS, LLC-USW201806-000888

PATIENT
  Age: 70 Year
  Sex: Male
  Weight: 89.81 kg

DRUGS (5)
  1. CARBIDOPA/LEVODOPA [Concomitant]
     Active Substance: CARBIDOPA\LEVODOPA
     Route: 048
  2. APOKYN [Suspect]
     Active Substance: APOMORPHINE HYDROCHLORIDE
     Indication: PARKINSON^S DISEASE
     Route: 058
     Dates: start: 20180531
  3. ALPRAZOLAM. [Concomitant]
     Active Substance: ALPRAZOLAM
     Route: 048
  4. TRAZODONE [Concomitant]
     Active Substance: TRAZODONE HYDROCHLORIDE
     Route: 048
  5. GABAPENTIN. [Concomitant]
     Active Substance: GABAPENTIN
     Route: 048

REACTIONS (1)
  - Gait disturbance [Recovered/Resolved]

NARRATIVE: CASE EVENT DATE: 20180605
